FAERS Safety Report 8683420 (Version 2)
Quarter: 2013Q2

REPORT INFORMATION
  Report Type: Spontaneous
  Country: US (occurrence: None)
  Receive Date: 20120411
  Receipt Date: 20120713
  Transmission Date: 20140414
  Serious: No
  Sender: FDA-Public Use
  Company Number: PHEH2012US005152

PATIENT
  Sex: Male

DRUGS (1)
  1. ILARIS [Suspect]
     Indication: CRYOPYRIN ASSOCIATED PERIODIC SYNDROME
     Dosage: 150 MG, SUBCUTANEOUS
     Route: 058
     Dates: start: 20110615

REACTIONS (3)
  - DRUG INEFFECTIVE [None]
  - Cryopyrin associated periodic syndrome [None]
  - Condition aggravated [None]
